FAERS Safety Report 8141756 (Version 4)
Quarter: 2013Q3

REPORT INFORMATION
  Report Type: Spontaneous
  Country: BR (occurrence: BR)
  Receive Date: 20110919
  Receipt Date: 20130827
  Transmission Date: 20140515
  Serious: Yes (Death, Hospitalization, Other)
  Sender: FDA-Public Use
  Company Number: BR-AMGEN-BRASP2011047136

PATIENT
  Age: 41 Year
  Sex: Male
  Weight: 113 kg

DRUGS (10)
  1. ENBREL [Suspect]
     Indication: ANKYLOSING SPONDYLITIS
     Dosage: 25 MG, 2X/WEEK
     Route: 058
     Dates: start: 200906, end: 201008
  2. ENBREL [Suspect]
     Dosage: 50 MG, ONCE WEEKLY
     Route: 058
     Dates: start: 201009, end: 201109
  3. METHOTREXATE [Concomitant]
     Indication: PRODUCT USED FOR UNKNOWN INDICATION
     Dosage: 12.5 MG (5 TABLETS OF 2.5MG), ONCE WEEKLY
     Dates: start: 20080411, end: 20110815
  4. PREDNISONE [Concomitant]
     Indication: PRODUCT USED FOR UNKNOWN INDICATION
     Dosage: 10 MG (TWO TABLETS OF 5MG), 1X/DAY
     Dates: start: 20080411, end: 20110815
  5. CHLOROTHIAZIDE [Concomitant]
     Dosage: UNK
  6. LOSARTAN [Concomitant]
     Dosage: UNK
  7. ALLOPURINOL [Concomitant]
     Dosage: UNK
  8. OMEPRAZOL                          /00661201/ [Concomitant]
     Dosage: UNK
  9. SUSTRATE [Concomitant]
     Dosage: UNK
  10. IBUPROFEN [Concomitant]
     Dosage: UNK

REACTIONS (6)
  - Death [Fatal]
  - Pleural effusion [Not Recovered/Not Resolved]
  - Dengue fever [Unknown]
  - Laboratory test abnormal [Not Recovered/Not Resolved]
  - Infection [Unknown]
  - Tuberculosis [Unknown]
